FAERS Safety Report 15700964 (Version 1)
Quarter: 2018Q4

REPORT INFORMATION
  Report Type: Spontaneous
  Country: GB (occurrence: GB)
  Receive Date: 20181207
  Receipt Date: 20181207
  Transmission Date: 20190205
  Serious: Yes (Other)
  Sender: FDA-Public Use
  Company Number: GB-ALLERGAN-1856685US

PATIENT
  Age: 68 Year
  Sex: Female

DRUGS (11)
  1. MIRTAZAPINE. [Concomitant]
     Active Substance: MIRTAZAPINE
  2. PREGABALIN. [Concomitant]
     Active Substance: PREGABALIN
  3. BUTRANS [Concomitant]
     Active Substance: BUPRENORPHINE
  4. VITAMINS [Concomitant]
     Active Substance: VITAMINS
  5. PARACETAMOL [Concomitant]
     Active Substance: ACETAMINOPHEN
  6. MEMANTINE HCL - BP [Suspect]
     Active Substance: MEMANTINE
     Indication: DEMENTIA
     Dosage: 20.7 MG, UNK
     Route: 048
  7. ZOPICLONE [Concomitant]
     Active Substance: ZOPICLONE
  8. ACCRETE D3 [Concomitant]
  9. OMEPRAZOLE. [Concomitant]
     Active Substance: OMEPRAZOLE
  10. LETROZOLE. [Concomitant]
     Active Substance: LETROZOLE
  11. THIAMINE. [Concomitant]
     Active Substance: THIAMINE

REACTIONS (1)
  - Seizure [Recovered/Resolved]

NARRATIVE: CASE EVENT DATE: 20181109
